FAERS Safety Report 7167032-4 (Version None)
Quarter: 2010Q4

REPORT INFORMATION
  Report Type: 
  Country: None (occurrence: None)
  Receive Date: 20101216
  Receipt Date: 20101209
  Transmission Date: 20110411
  Serious: Yes (Death)
  Sender: FDA-Public Use
  Company Number: B0686168A

PATIENT
  Age: 73 Year
  Sex: Female
  Weight: 36 kg

DRUGS (11)
  1. PAXIL [Suspect]
     Indication: DEPRESSION
     Dosage: 20MG PER DAY
     Route: 048
     Dates: start: 20060901, end: 20081128
  2. PL [Suspect]
     Indication: NASOPHARYNGITIS
     Dosage: 1G PER DAY
     Route: 048
     Dates: start: 20081211, end: 20081211
  3. RISPERDAL [Concomitant]
     Indication: SCHIZOPHRENIA
     Dosage: 6MG PER DAY
     Route: 048
     Dates: start: 20060912, end: 20081128
  4. FLUPHENAZINE [Concomitant]
     Indication: SCHIZOPHRENIA
     Dosage: 1.5MG PER DAY
     Route: 048
     Dates: start: 20060912, end: 20081128
  5. AKINETON [Concomitant]
     Indication: PARKINSONISM
     Dosage: 3MG PER DAY
     Route: 048
     Dates: start: 20060912, end: 20081128
  6. DEPAS [Concomitant]
     Indication: ANXIETY
     Dosage: 3MG PER DAY
     Route: 048
     Dates: start: 20060912, end: 20081128
  7. GRAMALIL [Concomitant]
     Indication: AGITATION
     Dosage: 3MG PER DAY
     Route: 048
     Dates: start: 20060912, end: 20081128
  8. GASMOTIN [Concomitant]
     Indication: GASTRITIS
     Dosage: 15MG PER DAY
     Route: 048
     Dates: start: 20060912, end: 20081128
  9. MUCOSTA [Concomitant]
     Indication: GASTRITIS
     Dosage: 300MG PER DAY
     Route: 048
     Dates: start: 20060912, end: 20081128
  10. SILECE [Concomitant]
     Indication: INSOMNIA
     Dosage: 2MG PER DAY
     Route: 048
     Dates: start: 20060912, end: 20081128
  11. SOLANAX [Concomitant]
     Indication: INSOMNIA
     Dosage: .4MG PER DAY
     Route: 048
     Dates: start: 20060912, end: 20081128

REACTIONS (6)
  - CARDIAC ARREST [None]
  - DEPRESSED LEVEL OF CONSCIOUSNESS [None]
  - NASOPHARYNGITIS [None]
  - RESPIRATORY ACIDOSIS [None]
  - RESPIRATORY ARREST [None]
  - RESPIRATORY FAILURE [None]
